FAERS Safety Report 5815916-9 (Version None)
Quarter: 2008Q3

REPORT INFORMATION
  Report Type: 
  Country: None (occurrence: None)
  Receive Date: 20080721
  Receipt Date: 20080708
  Transmission Date: 20090109
  Serious: Yes (Hospitalization)
  Sender: FDA-Public Use
  Company Number: ES-ROCHE-574844

PATIENT
  Age: 37 Year
  Sex: Male

DRUGS (6)
  1. CELLCEPT [Suspect]
     Indication: RENAL TRANSPLANT
     Route: 048
  2. PREDNISONA ALONGA [Interacting]
     Indication: RENAL TRANSPLANT
     Route: 048
  3. RAPAMUNE [Interacting]
     Indication: RENAL TRANSPLANT
     Dosage: FORMULATION: COATED TABLETS
     Route: 048
  4. CARVEDILOL [Concomitant]
     Route: 048
  5. NORVASC [Concomitant]
     Route: 048
  6. RANITIDINA [Concomitant]
     Dosage: DRUG: RANITIDINA ALTER
     Route: 048

REACTIONS (2)
  - DRUG INTERACTION [None]
  - HYPERGLYCAEMIA [None]
